FAERS Safety Report 10398026 (Version 1)
Quarter: 2014Q3

REPORT INFORMATION
  Report Type: Spontaneous
  Country: US (occurrence: None)
  Receive Date: 20140818
  Receipt Date: 20140818
  Transmission Date: 20150326
  Serious: Yes (Hospitalization)
  Sender: FDA-Public Use
  Company Number: None

PATIENT
  Age: 84 Year
  Sex: Male
  Weight: 63.1 kg

DRUGS (2)
  1. CYCLOBENZAPRINE [Suspect]
     Active Substance: CYCLOBENZAPRINE
     Route: 048
     Dates: start: 20090107
  2. HYDROMORPHONE [Suspect]
     Active Substance: HYDROMORPHONE
     Indication: PAIN
     Dosage: 4 MG  PRN  PO
     Route: 048
     Dates: start: 20140530, end: 20140620

REACTIONS (5)
  - Encephalopathy [None]
  - Myoclonus [None]
  - Sedation [None]
  - Convulsion [None]
  - Dialysis related complication [None]

NARRATIVE: CASE EVENT DATE: 20140620
